FAERS Safety Report 10409339 (Version 1)
Quarter: 2014Q3

REPORT INFORMATION
  Report Type: Spontaneous
  Country: DK (occurrence: DK)
  Receive Date: 20140826
  Receipt Date: 20140826
  Transmission Date: 20150326
  Serious: Yes (Hospitalization)
  Sender: FDA-Public Use
  Company Number: DK-PFIZER INC-2014233589

PATIENT
  Age: 71 Year
  Sex: Male

DRUGS (8)
  1. ADRIAMYCIN [Suspect]
     Active Substance: DOXORUBICIN HYDROCHLORIDE
     Indication: B-CELL LYMPHOMA
     Dosage: 100 MG X 1 PER SERIES
     Route: 042
     Dates: start: 201312
  2. CYCLOPHOSPHAMIDE. [Concomitant]
     Active Substance: CYCLOPHOSPHAMIDE
     Indication: B-CELL LYMPHOMA
     Dosage: 500 MG, UNK
     Dates: start: 201312, end: 201403
  3. KININ ^DAK^ [Concomitant]
     Indication: RESTLESSNESS
  4. VELCADE [Concomitant]
     Active Substance: BORTEZOMIB
     Indication: B-CELL LYMPHOMA
     Dosage: 2.5 MG, UNK
     Dates: start: 201312, end: 201403
  5. MABTHERA [Concomitant]
     Active Substance: RITUXIMAB
     Indication: B-CELL LYMPHOMA
     Dosage: 700 MG, UNK
     Dates: start: 201312, end: 201403
  6. PREDNISOLON ^DAK^ [Concomitant]
     Indication: B-CELL LYMPHOMA
     Dosage: 100 MG, UNK
     Dates: start: 201312, end: 201403
  7. TRADOLAN [Concomitant]
     Active Substance: TRAMADOL
     Indication: PAIN
     Dosage: AS NEEDED
  8. DERINIK [Concomitant]
     Indication: RESTLESSNESS

REACTIONS (4)
  - Cough [Unknown]
  - Cardiac failure [Not Recovered/Not Resolved]
  - Dyspnoea [Unknown]
  - Oedema [Unknown]

NARRATIVE: CASE EVENT DATE: 201406
